FAERS Safety Report 22643764 (Version 1)
Quarter: 2023Q2

REPORT INFORMATION
  Report Type: Spontaneous
  Country: US (occurrence: None)
  Receive Date: 20230627
  Receipt Date: 20230627
  Transmission Date: 20230722
  Serious: No
  Sender: FDA-Public Use
  Company Number: US-Encube-000386

PATIENT
  Age: 67 Year
  Sex: Female

DRUGS (5)
  1. DICLOFENAC SODIUM [Suspect]
     Active Substance: DICLOFENAC SODIUM
     Indication: Procedural pain
     Dosage: 1 GM
     Dates: start: 2022
  2. ASPIRIN [Concomitant]
     Active Substance: ASPIRIN
     Dosage: IN THE MORNING
  3. TYLENOL [Concomitant]
     Active Substance: ACETAMINOPHEN
     Dosage: DURING THE DAY
  4. AJMALINE [Concomitant]
     Active Substance: AJMALINE
     Indication: Blood pressure measurement
  5. DICLOFENAC SODIUM [Suspect]
     Active Substance: DICLOFENAC SODIUM
     Indication: Procedural pain
     Dosage: 1 GM
     Dates: start: 2023, end: 20230612

REACTIONS (6)
  - Swollen tongue [Unknown]
  - Tongue dry [Unknown]
  - Salivary hypersecretion [Unknown]
  - Off label use [Unknown]
  - Incorrect dose administered [Unknown]
  - Inappropriate schedule of product administration [Unknown]

NARRATIVE: CASE EVENT DATE: 20220101
